FAERS Safety Report 23878598 (Version 1)
Quarter: 2024Q2

REPORT INFORMATION
  Report Type: Spontaneous
  Country: US (occurrence: US)
  Receive Date: 20240521
  Receipt Date: 20240521
  Transmission Date: 20240715
  Serious: Yes (Hospitalization)
  Sender: FDA-Public Use
  Company Number: US-OPKO PHARMACEUTICALS, LLC.-2024OPK00100

PATIENT
  Age: 54 Year
  Sex: Male
  Weight: 192.74 kg

DRUGS (15)
  1. RAYALDEE [Suspect]
     Active Substance: CALCIFEDIOL
     Indication: Chronic kidney disease
     Dosage: 30 MCG, QD
     Route: 048
     Dates: start: 20220509, end: 20230315
  2. RAYALDEE [Suspect]
     Active Substance: CALCIFEDIOL
     Indication: Hyperparathyroidism secondary
     Dosage: 60 MCG, QD
     Route: 048
     Dates: start: 20230316
  3. RAYALDEE [Suspect]
     Active Substance: CALCIFEDIOL
     Indication: Vitamin D deficiency
  4. ALLOPURINOL [Concomitant]
     Active Substance: ALLOPURINOL
     Dosage: 200 MG, QD
     Route: 048
  5. ATORVASTATIN [Concomitant]
     Active Substance: ATORVASTATIN
     Dosage: 10 MG, QD
     Route: 048
  6. CARVEDILOL [Concomitant]
     Active Substance: CARVEDILOL
     Dosage: 25 MG, BID
     Route: 048
  7. CINACALCET [Concomitant]
     Active Substance: CINACALCET
     Dosage: 30 MG, QD
     Route: 048
  8. ELIQUIS [Concomitant]
     Active Substance: APIXABAN
     Dosage: 5 MG, BID
     Route: 048
  9. FLOVENT [Concomitant]
     Active Substance: FLUTICASONE PROPIONATE
     Dosage: UNK, PRN
  10. FUROSEMIDE [Concomitant]
     Active Substance: FUROSEMIDE
     Dosage: 80 MG, BID
     Route: 048
  11. LEVOTHYROXINE SODIUM [Concomitant]
     Active Substance: LEVOTHYROXINE SODIUM
     Dosage: 50 MCG, QD
     Route: 048
  12. METOPROLOL SUCCINATE [Concomitant]
     Active Substance: METOPROLOL SUCCINATE
     Dosage: 50 MG, QD
     Route: 048
  13. SODIUM BICARBONATE [Concomitant]
     Active Substance: SODIUM BICARBONATE
     Dosage: 650 MG, TID
     Route: 048
  14. ALBUTEROL SULFATE [Concomitant]
     Active Substance: ALBUTEROL SULFATE
     Indication: Wheezing
     Dosage: 2 UNK, PRN
  15. CHOLECALCIFEROL [Concomitant]
     Active Substance: CHOLECALCIFEROL
     Dosage: 125 MCG, TIW
     Route: 048

REACTIONS (1)
  - Hospitalisation [Unknown]

NARRATIVE: CASE EVENT DATE: 20240425
